FAERS Safety Report 9728660 (Version 1)
Quarter: 2013Q4

REPORT INFORMATION
  Report Type: Spontaneous
  Country: US (occurrence: US)
  Receive Date: 20131204
  Receipt Date: 20131204
  Transmission Date: 20140711
  Serious: Yes (Other)
  Sender: FDA-Public Use
  Company Number: US-009507513-1311USA012246

PATIENT
  Age: 83 Year
  Sex: Female

DRUGS (3)
  1. LOSARTAN POTASSIUM TABLETS [Suspect]
     Route: 048
  2. LISINOPRIL [Suspect]
     Route: 048
  3. EXFORGE [Suspect]
     Dosage: 10-160 MG
     Dates: start: 20131106

REACTIONS (14)
  - Uterine neoplasm [Unknown]
  - Skin cancer [Unknown]
  - Lymphoma [Unknown]
  - Hysterectomy [Unknown]
  - Oophorectomy [Unknown]
  - Thyroid cancer [Unknown]
  - Nephrolithiasis [Unknown]
  - Joint swelling [Unknown]
  - Nocturia [Unknown]
  - Chromaturia [Unknown]
  - Blood pressure abnormal [Unknown]
  - Weight increased [Unknown]
  - Fluid retention [Unknown]
  - Drug ineffective [Unknown]
